FAERS Safety Report 9670345 (Version 1)
Quarter: 2013Q4

REPORT INFORMATION
  Report Type: Spontaneous
  Country: AR (occurrence: None)
  Receive Date: 20131104
  Receipt Date: 20131104
  Transmission Date: 20140711
  Serious: Yes (Death)
  Sender: FDA-Public Use
  Company Number: 2013P1020538

PATIENT
  Sex: 0

DRUGS (3)
  1. LORAZEPAM [Suspect]
  2. ZOLPIDEM [Suspect]
  3. CODEINE [Suspect]

REACTIONS (1)
  - Mental status changes [None]
